FAERS Safety Report 18918688 (Version 1)
Quarter: 2021Q1

REPORT INFORMATION
  Report Type: Other
  Country: AR (occurrence: AR)
  Receive Date: 20210220
  Receipt Date: 20210220
  Transmission Date: 20210420
  Serious: Yes (Hospitalization)
  Sender: FDA-Public Use
  Company Number: AR-ROCHE-2773911

PATIENT
  Age: 61 Year
  Sex: Female

DRUGS (1)
  1. XOLAIR [Suspect]
     Active Substance: OMALIZUMAB
     Indication: ASTHMA
     Dosage: 04/JUL/2019, MOST RECENT DOSE OF OMALIZUMAB WAS RECEIVED ON 04/JUL/2019.
     Route: 058
     Dates: start: 20170508

REACTIONS (2)
  - Incorrect dose administered [Unknown]
  - COVID-19 [Not Recovered/Not Resolved]

NARRATIVE: CASE EVENT DATE: 20210201
